FAERS Safety Report 6347404-8 (Version None)
Quarter: 2009Q3

REPORT INFORMATION
  Report Type: 
  Country: None (occurrence: None)
  Receive Date: 20090910
  Receipt Date: 20090903
  Transmission Date: 20100115
  Serious: Yes (Other)
  Sender: FDA-Public Use
  Company Number: NO-BAYER-200929974GPV

PATIENT
  Age: 82 Year
  Sex: Female

DRUGS (2)
  1. ASPIRIN [Suspect]
     Indication: ISCHAEMIC STROKE
  2. ACTIVASE [Suspect]
     Indication: ISCHAEMIC STROKE
     Route: 042

REACTIONS (2)
  - CEREBRAL HAEMORRHAGE [None]
  - HAEMORRHAGIC INFARCTION [None]
